FAERS Safety Report 10247841 (Version 1)
Quarter: 2014Q2

REPORT INFORMATION
  Report Type: Spontaneous
  Country: CN (occurrence: CN)
  Receive Date: 20140619
  Receipt Date: 20140619
  Transmission Date: 20141212
  Serious: Yes (Hospitalization)
  Sender: FDA-Public Use
  Company Number: CN-ELI_LILLY_AND_COMPANY-CN201406006205

PATIENT
  Sex: Male

DRUGS (6)
  1. CEFACLOR SUSTAINREL [Suspect]
     Indication: OROPHARYNGEAL DISCOMFORT
     Dosage: 375 MG, BID
     Route: 048
     Dates: start: 20131022, end: 20131029
  2. CEFACLOR SUSTAINREL [Suspect]
     Indication: CHEST PAIN
  3. CEFACLOR SUSTAINREL [Suspect]
     Indication: MOUTH ULCERATION
  4. DOXYCYCLINE [Suspect]
     Indication: OROPHARYNGEAL DISCOMFORT
     Dosage: 100 MG, QD
     Route: 048
     Dates: start: 20131027, end: 20131029
  5. DOXYCYCLINE [Suspect]
     Indication: CHEST PAIN
  6. TEGRETOL [Concomitant]
     Indication: HEADACHE
     Dosage: 1 DF, QD
     Route: 048
     Dates: start: 20111122, end: 20131122

REACTIONS (2)
  - Drug eruption [Recovering/Resolving]
  - Dermatitis allergic [Recovering/Resolving]
